FAERS Safety Report 8067193-9 (Version None)
Quarter: 2012Q1

REPORT INFORMATION
  Report Type: 
  Country: None (occurrence: None)
  Receive Date: 20120124
  Receipt Date: 20120118
  Transmission Date: 20120608
  Serious: Yes (Hospitalization)
  Sender: FDA-Public Use
  Company Number: US-GLAXOSMITHKLINE-A0940364A

PATIENT
  Age: 20 Year
  Sex: Male
  Weight: 81.8 kg

DRUGS (5)
  1. LAMICTAL [Suspect]
     Indication: CONVULSION
     Dosage: 200MG TWICE PER DAY
     Route: 048
     Dates: start: 20060801
  2. SYNTHROID [Concomitant]
  3. LAMOTRIGINE [Suspect]
     Indication: CONVULSION
     Dosage: 200MG TWICE PER DAY
     Route: 048
     Dates: start: 20101101, end: 20101201
  4. CORTEF [Concomitant]
  5. MAGNESIUM SULFATE [Concomitant]

REACTIONS (2)
  - CONVULSION [None]
  - BLOOD MAGNESIUM DECREASED [None]
